FAERS Safety Report 23181503 (Version 1)
Quarter: 2023Q4

REPORT INFORMATION
  Report Type: Spontaneous
  Country: US (occurrence: None)
  Receive Date: 20231113
  Receipt Date: 20231113
  Transmission Date: 20240110
  Serious: Yes (Life-Threatening, Hospitalization)
  Sender: FDA-Public Use
  Company Number: None

PATIENT
  Age: 23 Year
  Sex: Female
  Weight: 84.6 kg

DRUGS (2)
  1. OCREVUS [Suspect]
     Active Substance: OCRELIZUMAB
     Indication: Multiple sclerosis
     Dosage: OTHER FREQUENCY : EVERY 6 MONTHS;?
     Route: 041
     Dates: start: 20231113, end: 20231113
  2. OCREVUS [Concomitant]
     Active Substance: OCRELIZUMAB
     Dates: start: 20231113, end: 20231113

REACTIONS (9)
  - Anaphylactic reaction [None]
  - Dyspnoea [None]
  - Hypotension [None]
  - Pallor [None]
  - Speech disorder [None]
  - Rash [None]
  - Throat irritation [None]
  - Ear pruritus [None]
  - Nasal pruritus [None]

NARRATIVE: CASE EVENT DATE: 20231113
